FAERS Safety Report 4524223-6 (Version None)
Quarter: 2004Q4

REPORT INFORMATION
  Report Type: 
  Country: None (occurrence: None)
  Receive Date: 20041209
  Receipt Date: 20041130
  Transmission Date: 20050328
  Serious: Yes (Other)
  Sender: FDA-Public Use
  Company Number: 2004-11-1686

PATIENT
  Age: 3 Year
  Sex: Female

DRUGS (1)
  1. CELESTENE (BETAMETHASONE) ORAL SOLUTION [Suspect]
     Dosage: ORAL
     Route: 048

REACTIONS (2)
  - LEUKOCYTOSIS [None]
  - PLATELET COUNT INCREASED [None]
